FAERS Safety Report 4918315-7 (Version None)
Quarter: 2006Q1

REPORT INFORMATION
  Report Type: 
  Country: None (occurrence: None)
  Receive Date: 20060217
  Receipt Date: 20060217
  Transmission Date: 20060701
  Serious: Yes (Other)
  Sender: FDA-Public Use
  Company Number: None

PATIENT
  Age: 55 Year
  Sex: Female
  Weight: 91.173 kg

DRUGS (9)
  1. BYETTA [Suspect]
     Indication: DIABETES MELLITUS NON-INSULIN-DEPENDENT
     Dosage: 10 MCG  BID  SQ
     Route: 058
     Dates: start: 20050117, end: 20050131
  2. NADOLOL [Concomitant]
  3. METFORMIN [Concomitant]
  4. NEXIUM [Concomitant]
  5. ZYRTEC [Concomitant]
  6. CATAPRESS TTS-3 [Concomitant]
  7. AVAPRO [Concomitant]
  8. HYDROCHLOROTHIAZIDE [Concomitant]
  9. TRICOR [Concomitant]

REACTIONS (2)
  - CONDITION AGGRAVATED [None]
  - MYASTHENIA GRAVIS [None]
